FAERS Safety Report 10077780 (Version 1)
Quarter: 2014Q2

REPORT INFORMATION
  Report Type: Spontaneous
  Country: LV (occurrence: LV)
  Receive Date: 20140414
  Receipt Date: 20140414
  Transmission Date: 20141212
  Serious: Yes (Hospitalization)
  Sender: FDA-Public Use
  Company Number: CHNY2014LV001016

PATIENT
  Age: 51 Year
  Sex: Male

DRUGS (5)
  1. THERAFLU UNKNOWN [Suspect]
     Route: 065
  2. PREDNISOLONE [Concomitant]
     Dosage: 7.5 MG, QD
  3. PREDNISOLONE [Concomitant]
     Dosage: 15 MG, QD
     Route: 048
  4. METHOTREXATE [Concomitant]
     Dosage: 12.5 MG, QW
     Route: 048
  5. FOLIC ACID [Concomitant]
     Dosage: 5 MG, QW
     Route: 048

REACTIONS (16)
  - Lymphadenopathy [Recovering/Resolving]
  - Pneumonia legionella [Recovering/Resolving]
  - Hepatitis [Recovering/Resolving]
  - Spondyloarthropathy [Recovering/Resolving]
  - Asthenia [Recovering/Resolving]
  - Pyrexia [Recovered/Resolved]
  - Cough [Recovering/Resolving]
  - Arthralgia [Recovering/Resolving]
  - Pain [Recovering/Resolving]
  - Chills [Recovering/Resolving]
  - Malaise [Recovering/Resolving]
  - Abdominal pain [Recovering/Resolving]
  - Diarrhoea [Recovering/Resolving]
  - Skin disorder [Recovering/Resolving]
  - Hyperaemia [Recovering/Resolving]
  - Drug ineffective [Unknown]
